FAERS Safety Report 14015479 (Version 1)
Quarter: 2017Q3

REPORT INFORMATION
  Report Type: Report from Study
  Country: KR (occurrence: KR)
  Receive Date: 20170927
  Receipt Date: 20170927
  Transmission Date: 20171128
  Serious: Yes (Other)
  Sender: FDA-Public Use
  Company Number: KR-ROCHE-1995508

PATIENT

DRUGS (2)
  1. ALTEPLASE. [Suspect]
     Active Substance: ALTEPLASE
     Indication: ISCHAEMIC STROKE
     Dosage: 10% AS A BOLUS OF 0.9 MG/KG
     Route: 040
  2. ALTEPLASE. [Suspect]
     Active Substance: ALTEPLASE
     Dosage: 90% OF 0.9 MG/KG AS AN INFUSION OVER 60 MINUTES
     Route: 041

REACTIONS (2)
  - Haemorrhage [Unknown]
  - Haemorrhagic transformation stroke [Unknown]
